FAERS Safety Report 22717589 (Version 6)
Quarter: 2025Q1

REPORT INFORMATION
  Report Type: Report from Study
  Country: US (occurrence: US)
  Receive Date: 20230718
  Receipt Date: 20250207
  Transmission Date: 20250409
  Serious: Yes (Other)
  Sender: TAKEDA
  Company Number: US-TAKEDA-2023TUS016386

PATIENT
  Sex: Female
  Weight: 65 kg

DRUGS (16)
  1. HUMAN IMMUNOGLOBULIN G\HYALURONIDASE RECOMBINANT HUMAN [Suspect]
     Active Substance: HUMAN IMMUNOGLOBULIN G\HYALURONIDASE (HUMAN RECOMBINANT)
     Indication: Immunodeficiency common variable
     Dosage: 40 GRAM, Q4WEEKS
     Dates: start: 20230126
  2. DIPHENHYDRAMINE [Concomitant]
     Active Substance: DIPHENHYDRAMINE
  3. MINOXIDIL [Concomitant]
     Active Substance: MINOXIDIL
  4. SLYND [Concomitant]
     Active Substance: DROSPIRENONE
  5. EPINEPHRINE [Concomitant]
     Active Substance: EPINEPHRINE
  6. SODIUM CHLORIDE [Concomitant]
     Active Substance: SODIUM CHLORIDE
  7. SPIRONOLACTONE [Concomitant]
     Active Substance: SPIRONOLACTONE
  8. ACETAMINOPHEN [Concomitant]
     Active Substance: ACETAMINOPHEN
  9. SYNTHROID [Concomitant]
     Active Substance: LEVOTHYROXINE SODIUM
  10. SODIUM CHLORIDE [Concomitant]
     Active Substance: SODIUM CHLORIDE
  11. CELEBREX [Concomitant]
     Active Substance: CELECOXIB
  12. CLARITIN [Concomitant]
     Active Substance: LORATADINE
  13. XOPENEX HFA [Concomitant]
     Active Substance: LEVALBUTEROL TARTRATE
  14. LIDOCAINE [Concomitant]
     Active Substance: LIDOCAINE
  15. QULIPTA [Concomitant]
     Active Substance: ATOGEPANT
  16. DIPHENHYDRAMINE HYDROCHLORIDE [Concomitant]
     Active Substance: DIPHENHYDRAMINE HYDROCHLORIDE

REACTIONS (7)
  - Pneumonia [Unknown]
  - Influenza [Unknown]
  - Bronchitis [Unknown]
  - Urinary tract infection [Unknown]
  - Sinusitis [Unknown]
  - COVID-19 [Unknown]
  - Product dose omission issue [Unknown]
